FAERS Safety Report 25396365 (Version 1)
Quarter: 2025Q2

REPORT INFORMATION
  Report Type: Spontaneous
  Country: TW (occurrence: TW)
  Receive Date: 20250604
  Receipt Date: 20250604
  Transmission Date: 20250717
  Serious: Yes (Other)
  Sender: MYLAN
  Company Number: TW-MYLANLABS-2025M1046434

PATIENT
  Age: 50 Year
  Sex: Female
  Weight: 55 kg

DRUGS (8)
  1. CELEBREX [Suspect]
     Active Substance: CELECOXIB
     Indication: Product used for unknown indication
     Dosage: 200 MILLIGRAM, QD
     Dates: start: 20250515, end: 20250521
  2. CELEBREX [Suspect]
     Active Substance: CELECOXIB
     Dosage: 200 MILLIGRAM, QD
     Route: 065
     Dates: start: 20250515, end: 20250521
  3. CELEBREX [Suspect]
     Active Substance: CELECOXIB
     Dosage: 200 MILLIGRAM, QD
     Route: 065
     Dates: start: 20250515, end: 20250521
  4. CELEBREX [Suspect]
     Active Substance: CELECOXIB
     Dosage: 200 MILLIGRAM, QD
     Dates: start: 20250515, end: 20250521
  5. NICAMETATE CITRATE [Concomitant]
     Active Substance: NICAMETATE CITRATE
     Dosage: 1 DOSAGE FORM, AM
  6. NICAMETATE CITRATE [Concomitant]
     Active Substance: NICAMETATE CITRATE
     Dosage: 1 DOSAGE FORM, AM
     Route: 065
  7. NICAMETATE CITRATE [Concomitant]
     Active Substance: NICAMETATE CITRATE
     Dosage: 1 DOSAGE FORM, AM
     Route: 065
  8. NICAMETATE CITRATE [Concomitant]
     Active Substance: NICAMETATE CITRATE
     Dosage: 1 DOSAGE FORM, AM

REACTIONS (3)
  - Oropharyngeal pain [Recovered/Resolved]
  - Pharyngeal swelling [Recovered/Resolved]
  - Palpitations [Recovered/Resolved]
